FAERS Safety Report 8046410-5 (Version None)
Quarter: 2012Q1

REPORT INFORMATION
  Report Type: 
  Country: None (occurrence: None)
  Receive Date: 20120113
  Receipt Date: 20120109
  Transmission Date: 20120608
  Serious: Yes (Death)
  Sender: FDA-Public Use
  Company Number: IE-AMGEN-IRLSP2011062309

PATIENT
  Age: 90 Year
  Sex: Male

DRUGS (6)
  1. ARANESP [Suspect]
     Indication: PRODUCT USED FOR UNKNOWN INDICATION
     Dosage: 20 MUG, QWK
     Route: 058
     Dates: start: 20110914
  2. METOPROLOL TARTRATE [Concomitant]
  3. ONE ALPHA [Concomitant]
  4. FOLIC ACID [Concomitant]
  5. AMOXICILLIN [Concomitant]
  6. CITALOPRAM HYDROBROMIDE [Concomitant]

REACTIONS (1)
  - DEATH [None]
